FAERS Safety Report 8498327-X (Version None)
Quarter: 2012Q3

REPORT INFORMATION
  Report Type: 
  Country: None (occurrence: None)
  Receive Date: 20120709
  Receipt Date: 20120622
  Transmission Date: 20120928
  Serious: Yes (Other)
  Sender: FDA-Public Use
  Company Number: US-AMGEN-USASP2012038911

PATIENT
  Age: 78 Year
  Sex: Female

DRUGS (1)
  1. ENBREL [Suspect]
     Indication: RHEUMATOID ARTHRITIS
     Dosage: 50 MG, QWK
     Dates: start: 20090504

REACTIONS (9)
  - ABDOMINAL DISTENSION [None]
  - LIP PAIN [None]
  - RHINALGIA [None]
  - SQUAMOUS CELL CARCINOMA OF SKIN [None]
  - DIARRHOEA [None]
  - LIP BLISTER [None]
  - HYPERHIDROSIS [None]
  - BLEPHARITIS [None]
  - DRY SKIN [None]
